FAERS Safety Report 11420809 (Version 1)
Quarter: 2015Q3

REPORT INFORMATION
  Report Type: Spontaneous
  Country: US (occurrence: US)
  Receive Date: 20150826
  Receipt Date: 20150826
  Transmission Date: 20151125
  Serious: No
  Sender: FDA-Public Use
  Company Number: US-PFIZER INC-2015276036

PATIENT
  Age: 25 Year
  Sex: Male

DRUGS (2)
  1. CLEOCIN [Suspect]
     Active Substance: CLINDAMYCIN PHOSPHATE
     Indication: RASH PUSTULAR
     Dosage: UNK UNK, 2X/DAY
     Route: 003
     Dates: start: 20150812, end: 20150812
  2. CLEOCIN [Suspect]
     Active Substance: CLINDAMYCIN PHOSPHATE
     Indication: INFECTION

REACTIONS (5)
  - Product closure issue [Recovered/Resolved]
  - Product odour abnormal [Recovered/Resolved]
  - Drug dose omission [Recovered/Resolved]
  - Burning sensation [Recovered/Resolved]
  - Product use issue [Recovered/Resolved]

NARRATIVE: CASE EVENT DATE: 20150812
